FAERS Safety Report 6526837-0 (Version None)
Quarter: 2010Q1

REPORT INFORMATION
  Report Type: 
  Country: None (occurrence: None)
  Receive Date: 20100105
  Receipt Date: 20091228
  Transmission Date: 20100710
  Serious: Yes (Other)
  Sender: FDA-Public Use
  Company Number: FR-ASTRAZENECA-2009SE33827

PATIENT
  Age: 710 Month
  Sex: Male

DRUGS (2)
  1. CRESTOR [Suspect]
     Route: 048
     Dates: start: 20050101, end: 20090901
  2. MICARDIS HCT [Suspect]
     Dosage: 40 MG/12.5 MG, 1 TABLET DAILY
     Route: 048
     Dates: start: 20050101, end: 20090901

REACTIONS (1)
  - LICHEN PLANUS [None]
